FAERS Safety Report 14077332 (Version 2)
Quarter: 2018Q1

REPORT INFORMATION
  Report Type: Spontaneous
  Country: US (occurrence: US)
  Receive Date: 20171012
  Receipt Date: 20180110
  Transmission Date: 20180508
  Serious: No
  Sender: FDA-Public Use
  Company Number: US-TEVA-809520ACC

PATIENT
  Sex: Female

DRUGS (3)
  1. PIOGLITAZONE. [Suspect]
     Active Substance: PIOGLITAZONE
     Indication: DIABETES MELLITUS
     Dates: start: 201707
  2. INSULIN [Concomitant]
     Active Substance: INSULIN NOS
     Indication: DIABETES MELLITUS
     Dosage: 70-80 UNITS BEFORE BED AND 16-18 UNITS BEFORE MEALS
  3. INSULIN [Concomitant]
     Active Substance: INSULIN NOS
     Dosage: 40 UNITS BEFORE BED AND 10 UNITS BEFORE MEALS

REACTIONS (3)
  - Tooth disorder [Unknown]
  - Pain in jaw [Not Recovered/Not Resolved]
  - Oral pain [Unknown]
